FAERS Safety Report 4447219-1 (Version None)
Quarter: 2004Q3

REPORT INFORMATION
  Report Type: 
  Country: None (occurrence: None)
  Receive Date: 20040908
  Receipt Date: 20040908
  Transmission Date: 20050211
  Serious: Yes (Hospitalization)
  Sender: FDA-Public Use
  Company Number: None

PATIENT
  Age: 59 Year
  Sex: Female

DRUGS (2)
  1. LYMPHAZURIN [Suspect]
     Indication: BIOPSY LYMPH GLAND
     Dosage: 4 ML
     Dates: start: 20040616, end: 20040616
  2. LYMPHAZURIN [Suspect]
     Indication: MALIGNANT BREAST LUMP REMOVAL
     Dosage: 4 ML
     Dates: start: 20040616, end: 20040616

REACTIONS (3)
  - EYE SWELLING [None]
  - SKIN DISCOLOURATION [None]
  - URTICARIA [None]
